FAERS Safety Report 20426241 (Version 1)
Quarter: 2022Q1

REPORT INFORMATION
  Report Type: Spontaneous
  Country: JP (occurrence: JP)
  Receive Date: 20220204
  Receipt Date: 20220204
  Transmission Date: 20220423
  Serious: Yes (Other)
  Sender: FDA-Public Use
  Company Number: JP-PFIZER INC-202200145445

PATIENT
  Sex: Male

DRUGS (3)
  1. ENBREL [Suspect]
     Active Substance: ETANERCEPT
     Indication: Product used for unknown indication
     Dosage: UNK UNK, 2 TIMES/WK
     Route: 058
  2. COMIRNATY [Suspect]
     Active Substance: TOZINAMERAN
     Indication: COVID-19 immunisation
     Dosage: DOSE 2, SINGLE
     Route: 065
  3. COMIRNATY [Suspect]
     Active Substance: TOZINAMERAN
     Dosage: DOSE 1, SINGLE
     Route: 065

REACTIONS (8)
  - Rheumatoid arthritis [Unknown]
  - C-reactive protein increased [Unknown]
  - Gait disturbance [Unknown]
  - Intermittent claudication [Unknown]
  - Inflammation [Unknown]
  - Arthralgia [Unknown]
  - Peripheral swelling [Unknown]
  - Nasopharyngitis [Unknown]
